FAERS Safety Report 16727272 (Version 2)
Quarter: 2019Q3

REPORT INFORMATION
  Report Type: Spontaneous
  Country: CA (occurrence: CA)
  Receive Date: 20190822
  Receipt Date: 20190925
  Transmission Date: 20191005
  Serious: Yes (Life-Threatening, Hospitalization, Other)
  Sender: FDA-Public Use
  Company Number: CA-AUROBINDO-AUR-APL-2019-054120

PATIENT
  Age: 52 Year
  Sex: Male

DRUGS (26)
  1. DIAZEPAM. [Interacting]
     Active Substance: DIAZEPAM
     Dosage: 1800.0 MILLIGRAM
     Route: 048
  2. LORAZEPAM. [Interacting]
     Active Substance: LORAZEPAM
     Dosage: 1.0 MILLIGRAM
     Route: 048
  3. MORPHINE [Interacting]
     Active Substance: MORPHINE
     Dosage: 9500.0 MILLIGRAM
     Route: 065
  4. MORPHINE [Interacting]
     Active Substance: MORPHINE
     Dosage: 15.0 MILLIGRAM
     Route: 065
  5. CITALOPRAM [Suspect]
     Active Substance: CITALOPRAM HYDROBROMIDE
     Indication: PRODUCT USED FOR UNKNOWN INDICATION
     Dosage: UNK
     Route: 048
  6. CIPRALEX [Interacting]
     Active Substance: ESCITALOPRAM OXALATE
     Dosage: 10.0 MILLIGRAM
     Route: 065
  7. MORPHINE [Interacting]
     Active Substance: MORPHINE
     Indication: DEPRESSION
     Dosage: 2640.0 MILLIGRAM
     Route: 065
  8. OXYCODONE [Interacting]
     Active Substance: OXYCODONE
     Indication: SPINAL STENOSIS
     Dosage: 10.0 MILLIGRAM
     Route: 065
  9. MORPHINE [Interacting]
     Active Substance: MORPHINE
     Indication: SPINAL STENOSIS
     Dosage: 30.0 MILLIGRAM, DAILY
     Route: 048
  10. MORPHINE [Interacting]
     Active Substance: MORPHINE
     Indication: PRODUCT USED FOR UNKNOWN INDICATION
     Dosage: 100.0 MILLIGRAM
     Route: 065
  11. ZOPICLONE [Interacting]
     Active Substance: ZOPICLONE
     Indication: INSOMNIA
     Dosage: 7.5 MILLIGRAM
     Route: 065
  12. ZOPICLONE [Interacting]
     Active Substance: ZOPICLONE
     Dosage: 187.5 MILLIGRAM
     Route: 048
  13. CIPRALEX [Interacting]
     Active Substance: ESCITALOPRAM OXALATE
     Dosage: 140.0 MILLIGRAM, DAILY
     Route: 048
  14. DIAZEPAM. [Interacting]
     Active Substance: DIAZEPAM
     Indication: SPINAL STENOSIS
     Dosage: UNK
     Route: 048
  15. OXYCODONE [Interacting]
     Active Substance: OXYCODONE
     Dosage: UNK
     Route: 065
  16. ALTACE [Interacting]
     Active Substance: RAMIPRIL
     Indication: PRODUCT USED FOR UNKNOWN INDICATION
     Dosage: UNK
     Route: 065
  17. CIPRALEX [Interacting]
     Active Substance: ESCITALOPRAM OXALATE
     Indication: DEPRESSION
     Dosage: 10.0 MILLIGRAM, DAILY
     Route: 065
  18. MORPHINE [Interacting]
     Active Substance: MORPHINE
     Dosage: 30 MILLIGRAM, ONCE A DAY
     Route: 048
  19. OXYCODONE [Interacting]
     Active Substance: OXYCODONE
     Dosage: UNK
     Route: 048
  20. OXYCODONE AND ACETAMINOPHEN [Interacting]
     Active Substance: ACETAMINOPHEN\OXYCODONE HYDROCHLORIDE
     Indication: PRODUCT USED FOR UNKNOWN INDICATION
     Dosage: UNK
     Route: 048
  21. MORPHINE [Interacting]
     Active Substance: MORPHINE
     Dosage: UNK
     Route: 048
  22. OXYCODONE [Interacting]
     Active Substance: OXYCODONE
     Dosage: 20.0 MILLIGRAM
     Route: 048
  23. DIAZEPAM. [Interacting]
     Active Substance: DIAZEPAM
     Dosage: 10.0 MILLIGRAM
     Route: 065
  24. LORAZEPAM. [Interacting]
     Active Substance: LORAZEPAM
     Indication: INSOMNIA
     Dosage: 30.0 MILLIGRAM
     Route: 048
  25. MORPHINE [Interacting]
     Active Substance: MORPHINE
     Dosage: 420.0 MILLIGRAM
     Route: 065
  26. ZOPICLONE [Interacting]
     Active Substance: ZOPICLONE
     Dosage: 15.0 MILLIGRAM, DAILY
     Route: 048

REACTIONS (22)
  - Electrocardiogram abnormal [Recovering/Resolving]
  - Hyperkalaemia [Recovering/Resolving]
  - Sinus tachycardia [Recovering/Resolving]
  - Intentional overdose [Recovering/Resolving]
  - Opiates positive [Recovering/Resolving]
  - Overdose [Recovering/Resolving]
  - Bradycardia [Recovering/Resolving]
  - Electrocardiogram QT prolonged [Recovering/Resolving]
  - Hypotension [Recovering/Resolving]
  - Blood potassium increased [Recovering/Resolving]
  - Drug interaction [Recovering/Resolving]
  - Drug screen positive [Recovering/Resolving]
  - Oxygen saturation decreased [Recovering/Resolving]
  - Suicide attempt [Recovering/Resolving]
  - Blood creatine increased [Recovering/Resolving]
  - Heart rate decreased [Recovering/Resolving]
  - Blood creatine phosphokinase increased [Recovering/Resolving]
  - Coma [Recovering/Resolving]
  - Mechanical ventilation [Recovering/Resolving]
  - Blood pressure decreased [Recovering/Resolving]
  - Coma scale abnormal [Recovering/Resolving]
  - Loss of consciousness [Recovering/Resolving]
